FAERS Safety Report 25998892 (Version 1)
Quarter: 2025Q4

REPORT INFORMATION
  Report Type: Spontaneous
  Country: US (occurrence: US)
  Receive Date: 20251105
  Receipt Date: 20251105
  Transmission Date: 20260117
  Serious: No
  Sender: TEVA
  Company Number: US-TEVA-VS-3308706

PATIENT
  Age: 76 Year
  Sex: Male
  Weight: 87 kg

DRUGS (1)
  1. AUSTEDO [Suspect]
     Active Substance: DEUTETRABENAZINE
     Indication: Huntington^s disease
     Dosage: 12 MG 1 TABLET BY MOUTH TWICE DAILY
     Route: 048

REACTIONS (4)
  - Communication disorder [Not Recovered/Not Resolved]
  - Off label use [Unknown]
  - Tremor [Unknown]
  - Product use issue [Unknown]
